FAERS Safety Report 9071569 (Version 1)
Quarter: 2013Q1

REPORT INFORMATION
  Report Type: Report from Study
  Country: US (occurrence: US)
  Receive Date: 20130129
  Receipt Date: 20130129
  Transmission Date: 20140127
  Serious: No
  Sender: FDA-Public Use
  Company Number: US-ABBOTT-12P-163-0928604-00

PATIENT
  Age: 44 None
  Sex: Male
  Weight: 95.34 kg

DRUGS (6)
  1. HUMIRA 40 MG/0.8 ML PEN [Suspect]
     Indication: PSORIASIS
     Route: 058
     Dates: start: 201203
  2. FISH OIL [Concomitant]
     Indication: SUPPLEMENTATION THERAPY
  3. FOLIC ACID [Concomitant]
     Indication: POLYMEDICATION
  4. LISINOPRIL [Concomitant]
     Indication: BLOOD PRESSURE
  5. METHOTREXATE [Concomitant]
     Indication: PSORIASIS
  6. PRILOSEC [Concomitant]
     Indication: PRODUCT USED FOR UNKNOWN INDICATION

REACTIONS (3)
  - Acne [Recovering/Resolving]
  - Influenza [Recovered/Resolved]
  - Diarrhoea [Recovered/Resolved]
